FAERS Safety Report 7203626-5 (Version None)
Quarter: 2010Q4

REPORT INFORMATION
  Report Type: 
  Country: None (occurrence: None)
  Receive Date: 20101230
  Receipt Date: 20101222
  Transmission Date: 20110411
  Serious: Yes (Hospitalization)
  Sender: FDA-Public Use
  Company Number: FR-PFIZER INC-2010126593

PATIENT
  Age: 43 Year
  Sex: Male

DRUGS (10)
  1. ATARAX [Suspect]
     Indication: ANXIETY
     Dosage: 200 MG, DAILY
     Route: 048
     Dates: start: 20081201
  2. RIVOTRIL [Suspect]
     Indication: ANXIETY
     Dosage: 110 ORAL DROPS
     Route: 048
     Dates: start: 20091101
  3. SOLIAN [Suspect]
     Indication: PSYCHOTIC DISORDER
     Dosage: 12 ML DAILY
     Route: 048
     Dates: start: 20091101, end: 20100701
  4. LOXAPAC [Suspect]
     Indication: PSYCHOTIC DISORDER
     Dosage: 500 ORAL DROPS, UNK
     Route: 048
     Dates: start: 20081201
  5. DEPAKOTE [Suspect]
     Indication: PSYCHOTIC DISORDER
     Dosage: 2500 MG DAILY
     Route: 048
     Dates: start: 20081201
  6. NOCTAMID [Suspect]
     Indication: INSOMNIA
     Dosage: 2 MG, DAILY
     Route: 048
     Dates: start: 20081201
  7. LEPTICUR [Suspect]
     Indication: EXTRAPYRAMIDAL DISORDER
     Dosage: 20 MG, DAILY
     Route: 048
     Dates: start: 20091101
  8. FORLAX [Concomitant]
  9. LEVOTHYROX [Concomitant]
  10. CLOPIXOL (HYDROCHLORIDE) [Concomitant]
     Indication: PSYCHOTIC DISORDER
     Dosage: 150 DROPS
     Route: 048
     Dates: start: 20100701

REACTIONS (2)
  - HYPOGLYCAEMIA [None]
  - PANCREATIC ISLETS HYPERPLASIA [None]
